FAERS Safety Report 14627416 (Version 1)
Quarter: 2018Q1

REPORT INFORMATION
  Report Type: Spontaneous
  Country: US (occurrence: US)
  Receive Date: 20180312
  Receipt Date: 20180312
  Transmission Date: 20180509
  Serious: No
  Sender: FDA-Public Use
  Company Number: US-SHIRE-US201808584

PATIENT
  Age: 47 Year
  Sex: Female
  Weight: 76.96 kg

DRUGS (1)
  1. CUVITRU [Suspect]
     Active Substance: HUMAN IMMUNOGLOBULIN G
     Indication: PRODUCT USED FOR UNKNOWN INDICATION
     Dosage: 8 G, 1X/WEEK
     Route: 058
     Dates: start: 20180227, end: 20180227

REACTIONS (2)
  - Seasonal allergy [Unknown]
  - Pruritus [Unknown]

NARRATIVE: CASE EVENT DATE: 20180227
